FAERS Safety Report 7167839-3 (Version None)
Quarter: 2010Q4

REPORT INFORMATION
  Report Type: 
  Country: None (occurrence: None)
  Receive Date: 20101216
  Receipt Date: 20101207
  Transmission Date: 20110411
  Serious: Yes (Death, Hospitalization)
  Sender: FDA-Public Use
  Company Number: JP-GENZYME-FABR-1000260

PATIENT
  Sex: Male
  Weight: 52 kg

DRUGS (20)
  1. FABRAZYME [Suspect]
     Indication: FABRY'S DISEASE
     Dosage: 35 MG, UNK
     Route: 042
     Dates: start: 20091214, end: 20100818
  2. FABRAZYME [Suspect]
     Dosage: 55 MG, Q2W
     Route: 042
     Dates: start: 20070722
  3. FABRAZYME [Suspect]
     Dosage: 55 MG, Q2W
     Route: 042
     Dates: start: 20050404, end: 20070515
  4. CARBAMAZEPINE [Concomitant]
     Indication: PRODUCT USED FOR UNKNOWN INDICATION
     Dosage: 400 MG, UNK
     Route: 048
  5. AMLODIPINE BESYLATE [Concomitant]
     Indication: HYPERTENSION
     Dosage: 10 MG, UNK
     Dates: end: 20070412
  6. TELMISARTAN [Concomitant]
     Indication: HYPERTENSION
     Dosage: 40 MG, UNK
     Route: 048
  7. FERROUS FUMARATE [Concomitant]
     Indication: NEPHROGENIC ANAEMIA
     Dosage: 1 DF, UNK
     Route: 048
     Dates: end: 20070410
  8. TEMOCAPRIL HYDROCHLORIDE [Concomitant]
     Indication: HYPERTENSION
     Dosage: 2 MG, UNK
     Route: 048
  9. CLOSTRIDIUM BUTYRICUM [Concomitant]
     Indication: GASTROINTESTINAL DISORDER
     Dosage: 3 G, UNK
     Route: 048
     Dates: start: 20070402, end: 20070410
  10. ALFACALCIDOL [Concomitant]
     Indication: RENAL FAILURE CHRONIC
     Dosage: 0.25 ?G, UNK
     Route: 048
     Dates: start: 20070802
  11. ALFACALCIDOL [Concomitant]
     Dosage: 0.25 MCG, UNK
  12. SENNOSIDE [Concomitant]
     Indication: PREMEDICATION
     Dosage: 24 MG, UNK
     Route: 048
     Dates: start: 20070419, end: 20070419
  13. GLYCERIN [Concomitant]
     Indication: PREMEDICATION
     Dosage: 60 ML, UNK
     Route: 054
     Dates: start: 20070420, end: 20070420
  14. FENTANYL CITRATE [Concomitant]
     Indication: SPINAL ANAESTHESIA
     Dosage: 1 ML, ONCE
     Route: 008
     Dates: start: 20070420, end: 20070420
  15. BUPIVACAINE HYDROCHLORIDE [Concomitant]
     Indication: SPINAL ANAESTHESIA
     Dosage: 2.5 ML, UNK
     Route: 008
     Dates: start: 20070420, end: 20070420
  16. SEVELAMER HYDROCHLORIDE [Concomitant]
     Indication: RENAL FAILURE CHRONIC
     Dosage: 1500 MG, UNK
     Dates: start: 20080306
  17. DARBEPOETIN ALFA [Concomitant]
     Indication: NEPHROGENIC ANAEMIA
     Dosage: 120 MCG, UNK
     Dates: start: 20080904, end: 20080904
  18. DARBEPOETIN ALFA [Concomitant]
     Dosage: 120 MCG, UNK
     Dates: start: 20080814, end: 20080814
  19. DARBEPOETIN ALFA [Concomitant]
     Dosage: 120 MCG, UNK
     Dates: start: 20080710, end: 20080710
  20. DARBEPOETIN ALFA [Concomitant]
     Dosage: 120 MCG, UNK
     Dates: start: 20080612, end: 20080612

REACTIONS (6)
  - CHEST PAIN [None]
  - CONJUNCTIVITIS ALLERGIC [None]
  - DIARRHOEA [None]
  - OEDEMA PERIPHERAL [None]
  - PERITONITIS [None]
  - RENAL IMPAIRMENT [None]
